FAERS Safety Report 24595345 (Version 3)
Quarter: 2024Q4

REPORT INFORMATION
  Report Type: Report from Study
  Country: GB (occurrence: GB)
  Receive Date: 20241109
  Receipt Date: 20241226
  Transmission Date: 20250114
  Serious: Yes (Other)
  Sender: ABBVIE
  Company Number: None

PATIENT
  Age: 67 Year
  Sex: Male

DRUGS (2)
  1. FOSCARBIDOPA\FOSLEVODOPA [Suspect]
     Active Substance: FOSCARBIDOPA\FOSLEVODOPA
     Indication: Parkinson^s disease
     Route: 058
     Dates: start: 20241028, end: 20241030
  2. FOSCARBIDOPA\FOSLEVODOPA [Suspect]
     Active Substance: FOSCARBIDOPA\FOSLEVODOPA
     Dosage: CT497785
     Route: 058

REACTIONS (10)
  - Angioedema [Recovering/Resolving]
  - Periorbital swelling [Recovering/Resolving]
  - Abdominal distension [Recovered/Resolved]
  - Abdominal discomfort [Unknown]
  - Ocular hyperaemia [Unknown]
  - Oral mucosal exfoliation [Unknown]
  - Mouth swelling [Recovered/Resolved]
  - Pain [Unknown]
  - Oral mucosal exfoliation [Unknown]
  - Malaise [Unknown]

NARRATIVE: CASE EVENT DATE: 20240101
